FAERS Safety Report 4727175-9 (Version None)
Quarter: 2005Q3

REPORT INFORMATION
  Report Type: 
  Country: None (occurrence: None)
  Receive Date: 20050726
  Receipt Date: 20050726
  Transmission Date: 20060218
  Serious: Yes (Other)
  Sender: FDA-Public Use
  Company Number: None

PATIENT
  Age: 66 Year
  Sex: Male
  Weight: 95.7 kg

DRUGS (10)
  1. BACITRACIN-NEOMYCIN-POLYMYXIN [Suspect]
  2. PREDNISONE [Concomitant]
  3. CEPHALEXIN [Concomitant]
  4. BACITRACIN-NEOMYCIN-POLYMYXIN [Concomitant]
  5. MONTELUKAST [Concomitant]
  6. ALBUTEROL [Concomitant]
  7. DIAZEPAM [Concomitant]
  8. FORMOTEROL FUMARATE [Concomitant]
  9. OMEPRAZOLE [Concomitant]
  10. TRIAMCINOLONE [Concomitant]

REACTIONS (1)
  - RASH [None]
